FAERS Safety Report 8275022-3 (Version None)
Quarter: 2012Q2

REPORT INFORMATION
  Report Type: 
  Country: None (occurrence: None)
  Receive Date: 20120411
  Receipt Date: 20120403
  Transmission Date: 20120825
  Serious: Yes (Other)
  Sender: FDA-Public Use
  Company Number: TR-ELI_LILLY_AND_COMPANY-TR201112001683

PATIENT
  Sex: Female
  Weight: 65 kg

DRUGS (2)
  1. CISPLATIN [Concomitant]
     Dosage: 50 MG, UNK
  2. GEMZAR [Suspect]
     Dosage: 1400 MG, SINGLE

REACTIONS (1)
  - INFUSION SITE PAIN [None]
